FAERS Safety Report 15998980 (Version 1)
Quarter: 2019Q1

REPORT INFORMATION
  Report Type: Report from Study
  Country: BR (occurrence: BR)
  Receive Date: 20190223
  Receipt Date: 20190223
  Transmission Date: 20190418
  Serious: Yes (Other)
  Sender: FDA-Public Use
  Company Number: PHHY2018BR000870

PATIENT
  Sex: Male
  Weight: 70 kg

DRUGS (1)
  1. ACLASTA [Suspect]
     Active Substance: ZOLEDRONIC ACID
     Indication: OSTEOPOROSIS
     Dosage: 1 DF, Q12MO
     Route: 042
     Dates: start: 20180412

REACTIONS (4)
  - Malaise [Not Recovered/Not Resolved]
  - Chills [Recovering/Resolving]
  - Pruritus generalised [Recovered/Resolved]
  - Asthenia [Not Recovered/Not Resolved]
